FAERS Safety Report 7907999-7 (Version None)
Quarter: 2011Q4

REPORT INFORMATION
  Report Type: 
  Country: None (occurrence: None)
  Receive Date: 20111110
  Receipt Date: 20111101
  Transmission Date: 20120403
  Serious: Yes (Hospitalization, Other)
  Sender: FDA-Public Use
  Company Number: US-ASTRAZENECA-2010SE32303

PATIENT
  Age: 90 Year
  Sex: Female

DRUGS (19)
  1. POTASSIUM [Concomitant]
  2. THERAGRAM [Concomitant]
     Dosage: 1 AM
  3. COLACE [Concomitant]
  4. NEXIUM [Suspect]
     Route: 048
  5. CRESTOR [Suspect]
     Route: 048
  6. LASIX [Concomitant]
  7. PROZAC [Concomitant]
  8. XANAX [Concomitant]
  9. ASPIRIN [Concomitant]
  10. MAGNESIUM HYDROXIDE TAB [Concomitant]
     Dosage: 1 TAB AT AM AND PM
  11. COREG [Concomitant]
  12. IMDUR [Concomitant]
  13. NITROGLYCERIN [Concomitant]
  14. PRILOSEC [Concomitant]
     Dosage: 40 MG 1 AM AND 1 PM
  15. LIPITOR [Concomitant]
  16. MILK OF MAGNESIA TAB [Concomitant]
  17. VICKS VAPOR RUB [Concomitant]
  18. TOPROL-XL [Suspect]
     Route: 048
  19. LISINOPRIL [Concomitant]

REACTIONS (14)
  - THROMBOPHLEBITIS [None]
  - CARDIAC FAILURE CONGESTIVE [None]
  - SINUSITIS [None]
  - HYPERTENSION [None]
  - CEREBROVASCULAR ACCIDENT [None]
  - BLOOD PRESSURE DIASTOLIC INCREASED [None]
  - BLOOD CHOLESTEROL INCREASED [None]
  - HIATUS HERNIA [None]
  - ULCER [None]
  - PAIN [None]
  - DRUG DOSE OMISSION [None]
  - CARDIAC DISORDER [None]
  - OESOPHAGEAL DISORDER [None]
  - NASOPHARYNGITIS [None]
